FAERS Safety Report 5565016-0 (Version None)
Quarter: 2007Q4

REPORT INFORMATION
  Report Type: 
  Country: None (occurrence: None)
  Receive Date: 20071212
  Receipt Date: 20071127
  Transmission Date: 20080405
  Serious: Yes (Hospitalization)
  Sender: FDA-Public Use
  Company Number: 2007BI025246

PATIENT
  Age: 49 Year
  Sex: Female

DRUGS (1)
  1. AVONEX [Suspect]
     Indication: MULTIPLE SCLEROSIS
     Dosage: 30 ;UG;QW;IM
     Route: 030
     Dates: start: 20050629

REACTIONS (5)
  - DIALYSIS [None]
  - FALL [None]
  - GAIT DISTURBANCE [None]
  - MUSCLE DISORDER [None]
  - RENAL FAILURE [None]
